FAERS Safety Report 7608534-3 (Version None)
Quarter: 2011Q3

REPORT INFORMATION
  Report Type: 
  Country: None (occurrence: None)
  Receive Date: 20110714
  Receipt Date: 20110630
  Transmission Date: 20111222
  Serious: Yes (Hospitalization, Other)
  Sender: FDA-Public Use
  Company Number: PHHY2010CA51100

PATIENT
  Sex: Female
  Weight: 51 kg

DRUGS (12)
  1. ZOLEDRONOC ACID [Suspect]
     Indication: OSTEOPOROSIS
     Dosage: 5 MG, UNK
     Route: 042
     Dates: start: 20090804
  2. VITAMIN D [Concomitant]
     Dosage: UNK UKN, UNK
  3. HORMONES [Concomitant]
  4. DIDROCAL [Concomitant]
     Dosage: 400 MG, UNK
  5. EVISTA [Concomitant]
     Dosage: 670 MG, UNK
  6. MIACALCIN [Concomitant]
     Dosage: 200 UL, UNK
  7. RISEDRONIC ACID [Concomitant]
     Dosage: 35 MG, UNK
     Dates: start: 20071122, end: 20090801
  8. FOSAMAX [Concomitant]
     Dosage: UNK UKN, UNK
  9. LEVOCOR [Concomitant]
     Dosage: UNK UKN, UNK
  10. ZOLEDRONOC ACID [Suspect]
     Route: 042
     Dates: start: 20100801
  11. CALCIUM CARBONATE [Concomitant]
     Dosage: UNK UKN, UNK
  12. FORTEO [Concomitant]
     Dosage: 20 MG, UNK

REACTIONS (2)
  - ATRIAL FIBRILLATION [None]
  - ARRHYTHMIA [None]
